FAERS Safety Report 5604775-5 (Version None)
Quarter: 2008Q1

REPORT INFORMATION
  Report Type: 
  Country: None (occurrence: None)
  Receive Date: 20080128
  Receipt Date: 20080117
  Transmission Date: 20080703
  Serious: Yes (Hospitalization)
  Sender: FDA-Public Use
  Company Number: GB-ROCHE-542288

PATIENT
  Age: 67 Year
  Sex: Male
  Weight: 122.4 kg

DRUGS (2)
  1. ORLISTAT [Suspect]
     Indication: OBESITY
     Route: 048
     Dates: start: 20071122, end: 20071204
  2. ORLISTAT [Suspect]
     Route: 048
     Dates: start: 20080104

REACTIONS (1)
  - FALL [None]
